FAERS Safety Report 7768595-8 (Version None)
Quarter: 2011Q3

REPORT INFORMATION
  Report Type: 
  Country: None (occurrence: None)
  Receive Date: 20110922
  Receipt Date: 20100831
  Transmission Date: 20111222
  Serious: No
  Sender: FDA-Public Use
  Company Number: US-ASTRAZENECA-2010SE31572

PATIENT
  Sex: Female
  Weight: 49.9 kg

DRUGS (1)
  1. SEROQUEL XR [Suspect]
     Indication: BIPOLAR DISORDER
     Route: 048
     Dates: start: 20100401

REACTIONS (6)
  - INSOMNIA [None]
  - NAUSEA [None]
  - HYPERHIDROSIS [None]
  - THIRST [None]
  - PYREXIA [None]
  - DRUG DOSE OMISSION [None]
